FAERS Safety Report 25274268 (Version 1)
Quarter: 2025Q2

REPORT INFORMATION
  Report Type: Spontaneous
  Country: IT (occurrence: IT)
  Receive Date: 20250506
  Receipt Date: 20250506
  Transmission Date: 20250716
  Serious: Yes (Hospitalization)
  Sender: TEVA
  Company Number: None

PATIENT
  Age: 77 Year
  Sex: Male

DRUGS (2)
  1. AMLODIPINE\OLMESARTAN [Suspect]
     Active Substance: AMLODIPINE\OLMESARTAN
     Indication: Hypertension
     Dosage: OLMESARTAN/AMLODIPINE 40 MG / 5 MG;?OLMESARTAN MEDOXOMIL + AMLODIPINE
     Route: 048
     Dates: start: 20250408, end: 20250411
  2. BISOPROLOL FUMARATE [Concomitant]
     Active Substance: BISOPROLOL FUMARATE
     Indication: Hypertension
     Route: 048
     Dates: start: 20250408, end: 20250411

REACTIONS (4)
  - Chest discomfort [Recovered/Resolved]
  - Chills [Recovered/Resolved]
  - Hyperhidrosis [Recovered/Resolved]
  - Headache [Recovered/Resolved]

NARRATIVE: CASE EVENT DATE: 20250408
